FAERS Safety Report 17843484 (Version 1)
Quarter: 2020Q2

REPORT INFORMATION
  Report Type: Spontaneous
  Country: CN (occurrence: CN)
  Receive Date: 20200531
  Receipt Date: 20200531
  Transmission Date: 20200714
  Serious: Yes (Other)
  Sender: FDA-Public Use
  Company Number: CN-009507513-2005CHN008149

PATIENT
  Age: 84 Year
  Sex: Male
  Weight: 75 kg

DRUGS (4)
  1. SODIUM CHLORIDE. [Suspect]
     Active Substance: SODIUM CHLORIDE
     Dosage: 100 MILLILITER, EVERY 8 HOURS
     Route: 041
     Dates: start: 20200428, end: 20200512
  2. YIN XING NEI ZHI ZHU SHE YE [GINKGO] [Suspect]
     Active Substance: GINKGO
     Dosage: 6 MILLILITER, QD
     Route: 042
     Dates: start: 20200508, end: 20200512
  3. TIENAM [Suspect]
     Active Substance: CILASTATIN SODIUM\IMIPENEM
     Indication: ANTI-INFECTIVE THERAPY
     Dosage: 0.5G, EVERY 8 HOURS
     Route: 041
     Dates: start: 20200428, end: 20200512
  4. RIVAROXABAN [Suspect]
     Active Substance: RIVAROXABAN
     Dosage: 15 MG, QD
     Route: 048
     Dates: start: 20200502, end: 20200512

REACTIONS (2)
  - Myocardial necrosis marker increased [Unknown]
  - Haemolysis [Recovering/Resolving]

NARRATIVE: CASE EVENT DATE: 2020
